FAERS Safety Report 5853978-3 (Version None)
Quarter: 2008Q3

REPORT INFORMATION
  Report Type: 
  Country: None (occurrence: None)
  Receive Date: 20080822
  Receipt Date: 20080815
  Transmission Date: 20090109
  Serious: Yes (Hospitalization)
  Sender: FDA-Public Use
  Company Number: DK-ASTRAZENECA-2008SE03664

PATIENT
  Age: 31375 Day
  Sex: Female

DRUGS (1)
  1. NEXIUM [Suspect]
     Route: 048

REACTIONS (8)
  - ANXIETY [None]
  - CYANOSIS [None]
  - DISSOCIATION [None]
  - FEELING COLD [None]
  - FEELING DRUNK [None]
  - HYPERTENSION [None]
  - PARAESTHESIA [None]
  - VISUAL IMPAIRMENT [None]
